FAERS Safety Report 7624147-1 (Version None)
Quarter: 2011Q3

REPORT INFORMATION
  Report Type: 
  Country: None (occurrence: None)
  Receive Date: 20110712
  Receipt Date: 20110627
  Transmission Date: 20111222
  Serious: Yes (Death)
  Sender: FDA-Public Use
  Company Number: OPER20110152

PATIENT
  Age: 26 Year
  Sex: Male
  Weight: 83.9154 kg

DRUGS (4)
  1. COCAINE (COCAINE) [Suspect]
     Indication: DRUG ABUSE
  2. OPANA ER [Suspect]
     Indication: DRUG ABUSE
  3. XANAX [Suspect]
     Indication: DRUG ABUSE
     Dosage: 0.5 MG, 90 TABLETS
     Dates: start: 20110302
  4. XANAX [Suspect]
     Indication: PRODUCT USED FOR UNKNOWN INDICATION
     Dosage: 0.5 MG, 90 TABLETS
     Dates: start: 20110302

REACTIONS (6)
  - UNRESPONSIVE TO STIMULI [None]
  - VISCERAL CONGESTION [None]
  - TOXICITY TO VARIOUS AGENTS [None]
  - PULMONARY OEDEMA [None]
  - FOREIGN BODY [None]
  - CONTUSION [None]
